FAERS Safety Report 23970527 (Version 1)
Quarter: 2024Q2

REPORT INFORMATION
  Report Type: Spontaneous
  Country: US (occurrence: US)
  Receive Date: 20240613
  Receipt Date: 20240613
  Transmission Date: 20240716
  Serious: Yes (Other)
  Sender: FDA-Public Use
  Company Number: US-BRISTOL-MYERS SQUIBB COMPANY-2024-094942

PATIENT
  Age: 76 Year
  Sex: Male
  Weight: 78.4 kg

DRUGS (4)
  1. EMPLICITI [Suspect]
     Active Substance: ELOTUZUMAB
     Indication: Plasma cell myeloma
     Route: 042
     Dates: start: 20180920, end: 20181108
  2. EMPLICITI [Suspect]
     Active Substance: ELOTUZUMAB
     Route: 042
     Dates: start: 20181114, end: 20181226
  3. REVLIMID [Concomitant]
     Active Substance: LENALIDOMIDE
     Indication: Plasma cell myeloma
     Route: 048
     Dates: start: 20180920, end: 20181224
  4. DECADRON [Concomitant]
     Active Substance: DEXAMETHASONE
     Indication: Plasma cell myeloma
     Route: 048
     Dates: start: 20180920, end: 20181226

REACTIONS (2)
  - Plasma cell myeloma [Unknown]
  - Plasma cell myeloma recurrent [Unknown]
